FAERS Safety Report 5346410-X (Version None)
Quarter: 2007Q2

REPORT INFORMATION
  Report Type: 
  Country: None (occurrence: None)
  Receive Date: 20070605
  Receipt Date: 20070529
  Transmission Date: 20071010
  Serious: Yes (Other)
  Sender: FDA-Public Use
  Company Number: US-SHR-US-2007-016360

PATIENT
  Age: 37 Year
  Sex: Female
  Weight: 54.422 kg

DRUGS (4)
  1. MIRENA [Suspect]
     Indication: MENORRHAGIA
     Dosage: 20 A?G/DAY, CONT
     Route: 015
     Dates: start: 20070201, end: 20070406
  2. EFFEXOR [Concomitant]
     Dosage: 150 UNK, UNK
  3. KLONAP [Concomitant]
     Dosage: 1 MG, UNK
  4. DEPANASE [Concomitant]

REACTIONS (4)
  - FALLOPIAN TUBE OBSTRUCTION [None]
  - INFERTILITY FEMALE [None]
  - PELVIC INFLAMMATORY DISEASE [None]
  - POST PROCEDURAL DISCOMFORT [None]
